FAERS Safety Report 7776571-4 (Version None)
Quarter: 2011Q3

REPORT INFORMATION
  Report Type: 
  Country: None (occurrence: None)
  Receive Date: 20110926
  Receipt Date: 20110915
  Transmission Date: 20111222
  Serious: Yes (Hospitalization, Other)
  Sender: FDA-Public Use
  Company Number: IT-JNJFOC-20110710982

PATIENT
  Sex: Male

DRUGS (6)
  1. ALPRAZOLAM [Suspect]
     Route: 048
  2. ALPRAZOLAM [Suspect]
     Indication: PANIC ATTACK
     Route: 048
     Dates: start: 20110726
  3. VENLAFAXINE HYDROCHLORIDE [Suspect]
     Indication: MAJOR DEPRESSION
     Route: 048
     Dates: start: 20110726
  4. RISPERDAL [Suspect]
     Route: 048
     Dates: start: 20110726
  5. VENLAFAXINE HYDROCHLORIDE [Suspect]
     Route: 048
  6. RISPERDAL [Suspect]
     Indication: PSYCHOTIC DISORDER
     Route: 048

REACTIONS (3)
  - MULTIPLE DRUG OVERDOSE INTENTIONAL [None]
  - SELF INJURIOUS BEHAVIOUR [None]
  - SLUGGISHNESS [None]
